FAERS Safety Report 7225489-4 (Version None)
Quarter: 2011Q1

REPORT INFORMATION
  Report Type: 
  Country: None (occurrence: None)
  Receive Date: 20110113
  Receipt Date: 20110107
  Transmission Date: 20110831
  Serious: Yes (Death)
  Sender: FDA-Public Use
  Company Number: US-MERCK-1101USA00883

PATIENT
  Age: 76 Year
  Sex: Female

DRUGS (9)
  1. ALPRAZOLAM [Suspect]
     Route: 065
  2. PANTOPRAZOLE [Suspect]
     Route: 065
  3. ZOCOR [Suspect]
     Route: 048
  4. LEVOTHYROXINE SODIUM [Suspect]
     Route: 065
  5. AMPHETAMINE [Suspect]
     Route: 065
  6. METHADONE HYDROCHLORIDE [Suspect]
     Route: 065
  7. ACETAMINOPHEN AND HYDROCODONE BITARTRATE [Suspect]
     Route: 065
  8. [THERAPY UNSPECIFIED] [Suspect]
     Route: 065
  9. FUROSEMIDE [Suspect]
     Route: 065

REACTIONS (2)
  - COMPLETED SUICIDE [None]
  - OVERDOSE [None]
